FAERS Safety Report 9254001 (Version 1)
Quarter: 2013Q2

REPORT INFORMATION
  Report Type: Spontaneous
  Country: US (occurrence: US)
  Receive Date: 20130425
  Receipt Date: 20130425
  Transmission Date: 20140414
  Serious: Yes (Hospitalization)
  Sender: FDA-Public Use
  Company Number: US-BAYER-2013-051723

PATIENT
  Age: 49 Year
  Sex: Female
  Weight: 61.22 kg

DRUGS (7)
  1. YASMIN [Suspect]
  2. ASTELIN [Concomitant]
     Dosage: 137 MCG
     Route: 045
     Dates: start: 20041215, end: 20050829
  3. ACYCLOVIR [ACICLOVIR] [Concomitant]
     Dosage: 400 MG, UNK
     Dates: start: 20050605, end: 20050730
  4. KETEK PAK [Concomitant]
     Dosage: UNK
     Dates: start: 20050829
  5. GFN 1200/DM [Concomitant]
     Dosage: 1,200 / 60
     Dates: start: 20050829
  6. METHYLPREDNISOLONE [Concomitant]
     Dosage: 4 MG, UNK
     Dates: start: 20050902
  7. KEFLEX [Concomitant]

REACTIONS (1)
  - Thrombophlebitis superficial [None]
